FAERS Safety Report 4640472-0 (Version None)
Quarter: 2005Q2

REPORT INFORMATION
  Report Type: 
  Country: None (occurrence: None)
  Receive Date: 20050419
  Receipt Date: 20050407
  Transmission Date: 20051028
  Serious: Yes (Other)
  Sender: FDA-Public Use
  Company Number: 2005020279

PATIENT
  Sex: Female
  Weight: 122.4712 kg

DRUGS (13)
  1. CELEBREX [Suspect]
     Indication: OSTEOARTHRITIS
     Dosage: 200 MG (200 MG, 1 IN 1 D), ORAL
     Route: 048
  2. BEXTRA [Suspect]
     Indication: OSTEOARTHRITIS
     Dosage: 20 MG (20 MG, 1 IN 1 D), ORAL
     Route: 048
     Dates: start: 20031115, end: 20041130
  3. ROFECOXIB [Suspect]
     Indication: OSTEOARTHRITIS
     Dosage: ORAL
     Route: 048
  4. FUROSEMIDE [Concomitant]
  5. ASPIRIN [Concomitant]
  6. ESCITALOPRAM OXALATE [Concomitant]
  7. ATORVASTATIN CALCIUM [Concomitant]
  8. TRAMADOL HCL [Concomitant]
  9. POTASSIUM CHLORIDE [Concomitant]
  10. ALPRAZOLAM [Concomitant]
  11. CONJUGATED ESTROGENS [Concomitant]
  12. VICODIN [Concomitant]
  13. IRBESARTAN [Concomitant]

REACTIONS (11)
  - CHEST PAIN [None]
  - DRUG INEFFECTIVE [None]
  - DYSPNOEA [None]
  - FLUID RETENTION [None]
  - GASTRIC DISORDER [None]
  - GLOSSODYNIA [None]
  - HERPES SIMPLEX [None]
  - ORAL PAIN [None]
  - POST PROCEDURAL PAIN [None]
  - SKIN EXFOLIATION [None]
  - WEIGHT INCREASED [None]
